FAERS Safety Report 4602405-2 (Version None)
Quarter: 2005Q1

REPORT INFORMATION
  Report Type: 
  Country: None (occurrence: None)
  Receive Date: 20050307
  Receipt Date: 20050222
  Transmission Date: 20050727
  Serious: Yes (Other)
  Sender: FDA-Public Use
  Company Number: HQWYE560724FEB05

PATIENT
  Sex: Male

DRUGS (1)
  1. PROTONIX [Suspect]
     Dosage: INTRAVENOUS
     Route: 042

REACTIONS (5)
  - CHEST PAIN [None]
  - HYPERTENSION [None]
  - NAUSEA [None]
  - TACHYCARDIA [None]
  - VOMITING [None]
